FAERS Safety Report 7939281-6 (Version None)
Quarter: 2011Q4

REPORT INFORMATION
  Report Type: 
  Country: None (occurrence: None)
  Receive Date: 20111125
  Receipt Date: 20111115
  Transmission Date: 20120403
  Serious: Yes (Hospitalization)
  Sender: FDA-Public Use
  Company Number: CA-AMGEN-CANSP2011060269

PATIENT
  Age: 63 Year
  Sex: Male

DRUGS (5)
  1. VITAMIN D [Concomitant]
  2. KAYEXALATE [Concomitant]
  3. ARANESP [Suspect]
     Indication: PRODUCT USED FOR UNKNOWN INDICATION
     Dosage: UNK
  4. IRON [Concomitant]
  5. HYDROXYZINE [Concomitant]

REACTIONS (1)
  - HOSPITALISATION [None]
